FAERS Safety Report 8443263-8 (Version None)
Quarter: 2012Q2

REPORT INFORMATION
  Report Type: 
  Country: None (occurrence: None)
  Receive Date: 20120617
  Receipt Date: 20120224
  Transmission Date: 20120825
  Serious: Yes (Hospitalization, Other)
  Sender: FDA-Public Use
  Company Number: PHHY2012JP014191

PATIENT
  Age: 11 Year
  Sex: Female
  Weight: 30 kg

DRUGS (1)
  1. EXJADE [Suspect]
     Indication: IRON OVERLOAD
     Dosage: UNK UKN, UNK
     Route: 048
     Dates: start: 20111101, end: 20120125

REACTIONS (13)
  - METABOLIC ACIDOSIS [None]
  - HYPOKALAEMIA [None]
  - HYPOMAGNESAEMIA [None]
  - HYPONATRAEMIA [None]
  - GLUCOSE URINE PRESENT [None]
  - METABOLIC ENCEPHALOPATHY [None]
  - AMINOACIDURIA [None]
  - MALAISE [None]
  - STATUS EPILEPTICUS [None]
  - FANCONI SYNDROME [None]
  - HYPOPHOSPHATAEMIA [None]
  - DECREASED APPETITE [None]
  - WEIGHT DECREASED [None]
